FAERS Safety Report 15775408 (Version 3)
Quarter: 2019Q1

REPORT INFORMATION
  Report Type: Spontaneous
  Country: DE (occurrence: DE)
  Receive Date: 20181231
  Receipt Date: 20190212
  Transmission Date: 20190417
  Serious: Yes (Congenital Anomaly, Other)
  Sender: FDA-Public Use
  Company Number: DE-TEVA-2018-DE-993172

PATIENT
  Age: 60 Year
  Sex: Male
  Weight: 77 kg

DRUGS (3)
  1. LEVOFLOXACIN. [Suspect]
     Active Substance: LEVOFLOXACIN
     Dosage: 250 BZW 500 MG
     Route: 048
     Dates: start: 1996, end: 2017
  2. CIPROFLOXACIN. [Suspect]
     Active Substance: CIPROFLOXACIN
     Route: 048
     Dates: start: 1996, end: 2017
  3. OFLOXACIN. [Suspect]
     Active Substance: OFLOXACIN
     Dosage: 250 OR 500 MG
     Route: 048
     Dates: start: 1996, end: 2017

REACTIONS (12)
  - Panic attack [Recovered/Resolved with Sequelae]
  - Neuralgia [Recovered/Resolved with Sequelae]
  - Tendonitis [Recovered/Resolved]
  - Tendon discomfort [Unknown]
  - Musculoskeletal discomfort [Unknown]
  - Arthropathy [Unknown]
  - Von Willebrand^s disease [Recovered/Resolved]
  - Tendon disorder [Unknown]
  - Nervous system disorder [Recovered/Resolved]
  - Depression [Recovered/Resolved with Sequelae]
  - Renal disorder [Not Recovered/Not Resolved]
  - Osteoarthritis [Recovered/Resolved with Sequelae]

NARRATIVE: CASE EVENT DATE: 1999
